FAERS Safety Report 9037959 (Version 1)
Quarter: 2013Q1

REPORT INFORMATION
  Report Type: Spontaneous
  Country: ES (occurrence: ES)
  Receive Date: 20130129
  Receipt Date: 20130129
  Transmission Date: 20140127
  Serious: Yes (Death)
  Sender: FDA-Public Use
  Company Number: ES-JNJFOC-20130113617

PATIENT
  Sex: 0

DRUGS (2)
  1. DOXORUBICIN HYDROCHLORIDE (CAELYX) [Suspect]
     Indication: KAPOSI^S SARCOMA
     Route: 042
  2. ANTIRETROVIRAL MEDICATIONS [Suspect]
     Indication: HIV INFECTION
     Route: 065

REACTIONS (1)
  - Hepatic cirrhosis [Fatal]
